FAERS Safety Report 8872077 (Version 4)
Quarter: 2013Q2

REPORT INFORMATION
  Report Type: Report from Study
  Country: JP (occurrence: JP)
  Receive Date: 20121027
  Receipt Date: 20130624
  Transmission Date: 20140414
  Serious: Yes (Other)
  Sender: FDA-Public Use
  Company Number: JP-009507513-1210JPN007398

PATIENT
  Age: 47 Year
  Sex: Male
  Weight: 82 kg

DRUGS (7)
  1. PEGINTRON [Suspect]
     Indication: CHRONIC HEPATITIS C
     Dosage: 1.23 MICROGRAM PER KILOGRAM, UNK
     Route: 058
     Dates: start: 20120802, end: 20130116
  2. REBETOL [Suspect]
     Indication: CHRONIC HEPATITIS C
     Dosage: 800 MG, QD
     Route: 048
     Dates: start: 20120802, end: 20120829
  3. REBETOL [Suspect]
     Dosage: 600 MG, QD
     Route: 048
     Dates: start: 20120830, end: 20130116
  4. TELAVIC [Suspect]
     Indication: CHRONIC HEPATITIS C
     Dosage: 2250 MG, QD
     Route: 048
     Dates: start: 20120802, end: 20120815
  5. TELAVIC [Suspect]
     Dosage: 1500 MG, QD
     Route: 048
     Dates: start: 20120816, end: 20121024
  6. LOXONIN [Concomitant]
     Indication: PYREXIA
     Dosage: UNK, PRN, FORMULATION: POR
     Route: 048
     Dates: start: 20120803, end: 20130116
  7. ALOSITOL [Concomitant]
     Indication: HYPERURICAEMIA
     Dosage: 200 MG, QD
     Route: 048
     Dates: start: 20120807, end: 20121024

REACTIONS (2)
  - Hyperuricaemia [Recovered/Resolved]
  - Anaemia [Recovered/Resolved]
